FAERS Safety Report 25519189 (Version 1)
Quarter: 2025Q3

REPORT INFORMATION
  Report Type: Spontaneous
  Country: EU (occurrence: EU)
  Receive Date: 20250704
  Receipt Date: 20250704
  Transmission Date: 20251020
  Serious: Yes (Other)
  Sender: NOVARTIS
  Company Number: EU-002147023-NVSC2025BG104727

PATIENT
  Age: 43 Year
  Sex: Female

DRUGS (1)
  1. NILOTINIB [Suspect]
     Active Substance: NILOTINIB
     Indication: Chronic myeloid leukaemia
     Dosage: 800 MG, QD
     Route: 048
     Dates: start: 201001, end: 201007

REACTIONS (2)
  - Myocardial ischaemia [Unknown]
  - Therapeutic response delayed [Unknown]
